FAERS Safety Report 5883948-0 (Version None)
Quarter: 2008Q3

REPORT INFORMATION
  Report Type: 
  Country: None (occurrence: None)
  Receive Date: 20080915
  Receipt Date: 20080912
  Transmission Date: 20090109
  Serious: Yes (Life-Threatening, Hospitalization)
  Sender: FDA-Public Use
  Company Number: JP-ASTRAZENECA-2008AP06834

PATIENT
  Age: 66 Year
  Sex: Female
  Weight: 46 kg

DRUGS (4)
  1. IRESSA [Suspect]
     Indication: LUNG ADENOCARCINOMA
     Route: 048
     Dates: start: 20080806, end: 20080825
  2. GLORIAMIN [Concomitant]
     Route: 048
  3. SELBEX [Concomitant]
     Route: 048
  4. DIAZEPAM [Concomitant]
     Route: 048

REACTIONS (3)
  - INTERSTITIAL LUNG DISEASE [None]
  - PNEUMOTHORAX [None]
  - RASH [None]
